FAERS Safety Report 16351326 (Version 1)
Quarter: 2019Q2

REPORT INFORMATION
  Report Type: Spontaneous
  Country: FR (occurrence: FR)
  Receive Date: 20190524
  Receipt Date: 20190524
  Transmission Date: 20190711
  Serious: Yes (Death, Other)
  Sender: FDA-Public Use
  Company Number: FR-BAYER-2019-096312

PATIENT
  Age: 75 Year
  Sex: Male

DRUGS (3)
  1. STIVARGA [Suspect]
     Active Substance: REGORAFENIB
     Indication: COLORECTAL CANCER METASTATIC
     Dosage: 120 MG, QD
     Dates: start: 201302
  2. STIVARGA [Suspect]
     Active Substance: REGORAFENIB
     Indication: COLORECTAL CANCER METASTATIC
     Dosage: 160 MG, QD
     Dates: end: 2014
  3. DILTIAZEM. [Concomitant]
     Active Substance: DILTIAZEM

REACTIONS (6)
  - Small intestinal obstruction [None]
  - Off label use [None]
  - Angiotensin converting enzyme increased [None]
  - Anastomotic haemorrhage [None]
  - Hypertension [None]
  - Death [Fatal]

NARRATIVE: CASE EVENT DATE: 201312
